FAERS Safety Report 12266537 (Version 3)
Quarter: 2016Q2

REPORT INFORMATION
  Report Type: Spontaneous
  Country: PT (occurrence: PT)
  Receive Date: 20160414
  Receipt Date: 20160531
  Transmission Date: 20160815
  Serious: Yes (Disabling, Other)
  Sender: FDA-Public Use
  Company Number: PT-AMGEN-PRTSP2016044086

PATIENT
  Age: 52 Year
  Sex: Female

DRUGS (4)
  1. PROCORALAN [Suspect]
     Active Substance: IVABRADINE
     Indication: HEART RATE INCREASED
     Dosage: 2.5 MG, QD
     Route: 048
     Dates: start: 201504, end: 2015
  2. INDERAL [Concomitant]
     Active Substance: PROPRANOLOL HYDROCHLORIDE
     Dosage: 10 MG, AS NEEDED
     Dates: start: 2004
  3. PROCORALAN [Suspect]
     Active Substance: IVABRADINE
     Dosage: 2.5 MG, QD
     Route: 048
     Dates: start: 2015, end: 201603
  4. ALPRAZOLAM. [Concomitant]
     Active Substance: ALPRAZOLAM
     Dosage: 10 MG, AS NEEDED

REACTIONS (12)
  - Heart rate decreased [Recovering/Resolving]
  - Thyrotoxic crisis [Recovered/Resolved]
  - Vertigo [Recovering/Resolving]
  - Impaired work ability [Recovering/Resolving]
  - Blood pressure decreased [Recovering/Resolving]
  - Hyperthyroidism [Recovered/Resolved]
  - Eye movement disorder [Recovering/Resolving]
  - Abdominal pain upper [Unknown]
  - Photopsia [Unknown]
  - Muscle spasms [Unknown]
  - Diarrhoea [Unknown]
  - Tremor [Unknown]

NARRATIVE: CASE EVENT DATE: 201603
